FAERS Safety Report 9242654 (Version 2)
Quarter: 2013Q2

REPORT INFORMATION
  Report Type: Spontaneous
  Country: JP (occurrence: JP)
  Receive Date: 20130419
  Receipt Date: 20130429
  Transmission Date: 20140414
  Serious: Yes (Other)
  Sender: FDA-Public Use
  Company Number: JP-GLAXOSMITHKLINE-B0883216A

PATIENT
  Age: 50 Year
  Sex: Female

DRUGS (6)
  1. LAMICTAL [Suspect]
     Indication: AFFECT LABILITY
     Dosage: 25MG PER DAY
     Route: 048
     Dates: start: 20130302, end: 20130324
  2. ZOPICLONE [Concomitant]
     Indication: SLEEP DISORDER
     Dosage: 7.5MG PER DAY
     Route: 048
     Dates: start: 20130111, end: 20130328
  3. JZOLOFT [Concomitant]
     Indication: ANTIDEPRESSANT THERAPY
     Dosage: 100MG PER DAY
     Route: 048
     Dates: start: 20121110
  4. ZYPREXA [Concomitant]
     Indication: AFFECT LABILITY
     Dosage: 2.5MG PER DAY
     Route: 065
     Dates: start: 20090201
  5. BROTIZOLAM [Concomitant]
     Indication: SLEEP DISORDER
     Dosage: .25MG PER DAY
     Route: 048
     Dates: start: 20120926
  6. ETHYL LOFLAZEPATE [Concomitant]
     Indication: ANXIOLYTIC THERAPY
     Dosage: 1MG PER DAY
     Route: 048
     Dates: start: 20120825

REACTIONS (8)
  - Rash [Recovered/Resolved]
  - Rash erythematous [Recovered/Resolved]
  - Lymphadenopathy [Unknown]
  - Pyrexia [Recovered/Resolved]
  - Lymphadenopathy [Unknown]
  - Pyrexia [Unknown]
  - Pigmentation disorder [Unknown]
  - Drug eruption [Unknown]
